FAERS Safety Report 4961635-0 (Version None)
Quarter: 2006Q1

REPORT INFORMATION
  Report Type: 
  Country: None (occurrence: None)
  Receive Date: 20060329
  Receipt Date: 20060316
  Transmission Date: 20060701
  Serious: Yes (Hospitalization)
  Sender: FDA-Public Use
  Company Number: 2006RR-01808

PATIENT
  Sex: Female
  Weight: 3.2 kg

DRUGS (1)
  1. FLUOXETINE [Suspect]
     Indication: DEPRESSION
     Dosage: 20 MG, QD, TRANSPLACENTAL
     Route: 064

REACTIONS (9)
  - AGITATION [None]
  - DRUG EXPOSURE DURING PREGNANCY [None]
  - DRUG WITHDRAWAL SYNDROME [None]
  - FEEDING DISORDER NEONATAL [None]
  - HYPERTONIA NEONATAL [None]
  - NEONATAL DISORDER [None]
  - PYREXIA [None]
  - SNEEZING [None]
  - VOMITING [None]
